FAERS Safety Report 5920115-6 (Version None)
Quarter: 2008Q4

REPORT INFORMATION
  Report Type: 
  Country: None (occurrence: None)
  Receive Date: 20081015
  Receipt Date: 20081015
  Transmission Date: 20090506
  Serious: Yes (Other)
  Sender: FDA-Public Use
  Company Number: None

PATIENT
  Sex: Female
  Weight: 82.1011 kg

DRUGS (1)
  1. LAMOTRIGINE [Suspect]
     Indication: BORDERLINE PERSONALITY DISORDER
     Dosage: 200MG QD PO
     Route: 048

REACTIONS (3)
  - DIZZINESS [None]
  - IMPAIRED WORK ABILITY [None]
  - PYREXIA [None]
